FAERS Safety Report 10397904 (Version 1)
Quarter: 2014Q3

REPORT INFORMATION
  Report Type: Spontaneous
  Country: US (occurrence: US)
  Receive Date: 20140821
  Receipt Date: 20140821
  Transmission Date: 20150326
  Serious: No
  Sender: FDA-Public Use
  Company Number: US-BIOGENIDEC-2014BI082012

PATIENT
  Sex: Male

DRUGS (8)
  1. LAMICTAL [Concomitant]
     Active Substance: LAMOTRIGINE
  2. CAVERJECT [Concomitant]
     Active Substance: ALPROSTADIL
  3. TECFIDERA [Suspect]
     Active Substance: DIMETHYL FUMARATE
     Indication: MULTIPLE SCLEROSIS
     Route: 048
  4. OTEZLA [Concomitant]
     Active Substance: APREMILAST
  5. DEPAKOTE [Concomitant]
     Active Substance: DIVALPROEX SODIUM
  6. CYMBALTA [Concomitant]
     Active Substance: DULOXETINE HYDROCHLORIDE
  7. ADDERALL [Concomitant]
     Active Substance: AMPHETAMINE ASPARTATE\AMPHETAMINE SULFATE\DEXTROAMPHETAMINE SACCHARATE\DEXTROAMPHETAMINE SULFATE
  8. KLONOPIN [Concomitant]
     Active Substance: CLONAZEPAM

REACTIONS (1)
  - Fatigue [Recovered/Resolved]
